FAERS Safety Report 20845746 (Version 2)
Quarter: 2022Q2

REPORT INFORMATION
  Report Type: Report from Study
  Country: IN (occurrence: IN)
  Receive Date: 20220518
  Receipt Date: 20220530
  Transmission Date: 20220721
  Serious: Yes (Hospitalization)
  Sender: FDA-Public Use
  Company Number: IN-TAKEDA-2022TUS031646

PATIENT
  Age: 23 Year
  Weight: 54 kg

DRUGS (30)
  1. VEDOLIZUMAB [Suspect]
     Active Substance: VEDOLIZUMAB
     Indication: Colitis ulcerative
     Dosage: 300 MILLIGRAM
     Route: 042
     Dates: start: 20220127, end: 20220504
  2. VEDOLIZUMAB [Suspect]
     Active Substance: VEDOLIZUMAB
     Indication: Inflammatory bowel disease
  3. Azoran [Concomitant]
     Indication: Inflammatory bowel disease
     Dosage: 75 MILLIGRAM, QD
     Route: 048
     Dates: start: 20211012, end: 20220509
  4. ROWASA [Concomitant]
     Active Substance: MESALAMINE
     Indication: Inflammatory bowel disease
     Dosage: 1 GRAM, BID
     Route: 048
     Dates: start: 20211126
  5. PREDNISOLONE [Concomitant]
     Active Substance: PREDNISOLONE
     Indication: Inflammatory bowel disease
     Dosage: 10 MILLIGRAM, BID
     Route: 048
     Dates: start: 20211227, end: 20220421
  6. PREDNISOLONE [Concomitant]
     Active Substance: PREDNISOLONE
     Dosage: 5 MILLIGRAM, QD
     Route: 048
     Dates: start: 20220422, end: 20220503
  7. FOLVITE [Concomitant]
     Active Substance: FOLIC ACID
     Indication: Supplementation therapy
     Dosage: 5 MILLIGRAM, QD
     Route: 048
     Dates: start: 20201119
  8. CALCIUM CARBONATE\CHOLECALCIFEROL [Concomitant]
     Active Substance: CALCIUM CARBONATE\CHOLECALCIFEROL
     Indication: Supplementation therapy
     Dosage: UNK UNK, QD
     Route: 048
     Dates: start: 20210805
  9. ENTOFOAM [Concomitant]
     Indication: Inflammatory bowel disease
     Dosage: UNK UNK, QD
     Route: 054
     Dates: start: 20211126, end: 20220417
  10. GANCICLOVIR [Concomitant]
     Active Substance: GANCICLOVIR
     Dosage: 250 MILLIGRAM, BID
     Route: 042
     Dates: start: 20220507
  11. CEFTRIAXONE [Concomitant]
     Active Substance: CEFTRIAXONE
  12. CEFOPERAZONE SODIUM\SULBACTAM SODIUM [Concomitant]
     Active Substance: CEFOPERAZONE SODIUM\SULBACTAM SODIUM
     Dosage: 3 GRAM, BID
     Route: 042
     Dates: start: 20220510
  13. CLINDAMYCIN [Concomitant]
     Active Substance: CLINDAMYCIN
     Dosage: 600 MILLIGRAM, TID
     Route: 042
     Dates: start: 20220510
  14. AZITHROMYCIN [Concomitant]
     Active Substance: AZITHROMYCIN
     Dosage: 500 MILLIGRAM, QD
     Route: 042
     Dates: start: 20220510
  15. DOLO 650 [Concomitant]
     Dosage: 650 MILLIGRAM, TID
     Route: 048
     Dates: start: 20220510
  16. ACETAMINOPHEN [Concomitant]
     Active Substance: ACETAMINOPHEN
     Dosage: 300 MILLIGRAM
     Route: 042
     Dates: start: 20220510, end: 20220511
  17. ASCORIL [Concomitant]
     Dosage: UNK UNK, TID
     Route: 048
     Dates: start: 20220510, end: 20220512
  18. RIFAMPIN [Concomitant]
     Active Substance: RIFAMPIN
     Dosage: 600 MILLIGRAM, QD
     Route: 048
     Dates: start: 20220513
  19. ISONIAZID [Concomitant]
     Active Substance: ISONIAZID
     Dosage: 300 MILLIGRAM, QD
     Route: 048
     Dates: start: 20220513
  20. ETHAMBUTOL HYDROCHLORIDE [Concomitant]
     Active Substance: ETHAMBUTOL HYDROCHLORIDE
     Dosage: 1000 MILLIGRAM, QD
     Route: 048
     Dates: start: 20220513
  21. PYRAZINAMIDE [Concomitant]
     Active Substance: PYRAZINAMIDE
     Dosage: 1500 MILLIGRAM, QD
     Route: 048
     Dates: start: 20220513
  22. PYRIDOXINE HYDROCHLORIDE [Concomitant]
     Active Substance: PYRIDOXINE HYDROCHLORIDE
     Dosage: 40 MILLIGRAM, QD
     Route: 048
     Dates: start: 20220512
  23. VALGANCICLOVIR HYDROCHLORIDE [Concomitant]
     Active Substance: VALGANCICLOVIR HYDROCHLORIDE
     Dosage: 900 MILLIGRAM, BID
     Route: 048
     Dates: start: 20220512
  24. TUSQ DX [Concomitant]
     Dosage: UNK UNK, TID
     Route: 048
     Dates: start: 20220514
  25. DMR [Concomitant]
     Dosage: UNK UNK, TID
     Route: 048
     Dates: start: 20220514
  26. Anetol [Concomitant]
     Dosage: 1000 MILLIGRAM, QD
     Route: 042
     Dates: start: 20220515, end: 20220515
  27. ENCICARB [Concomitant]
     Dosage: 500 MILLIGRAM, QD
     Route: 042
     Dates: start: 20220515, end: 20220515
  28. DNS [Concomitant]
     Dosage: 80 MILLILITER
     Route: 042
     Dates: start: 20220512, end: 20220513
  29. CHLORHEXIDINE [Concomitant]
     Active Substance: CHLORHEXIDINE
     Dosage: 10 MILLILITER, TID
     Route: 048
     Dates: start: 20220511
  30. Candid [Concomitant]
     Dosage: 1 MILLILITER, TID
     Route: 048
     Dates: start: 20220511

REACTIONS (1)
  - Pulmonary tuberculosis [Not Recovered/Not Resolved]

NARRATIVE: CASE EVENT DATE: 20220510
